FAERS Safety Report 4306847-4 (Version None)
Quarter: 2004Q1

REPORT INFORMATION
  Report Type: 
  Country: None (occurrence: None)
  Receive Date: 20040225
  Receipt Date: 20040209
  Transmission Date: 20041129
  Serious: Yes (Other)
  Sender: FDA-Public Use
  Company Number: GBS040214413

PATIENT
  Age: 42 Year
  Sex: Male

DRUGS (8)
  1. OLANZAPINE [Suspect]
     Indication: SCHIZOAFFECTIVE DISORDER
     Dosage: 30 MG/DAY
  2. CLOPIXOL (ZUCLOPENTHIXOL DECANOATE) [Concomitant]
  3. CLONAZEPAM [Concomitant]
  4. HALOPERIDOL [Concomitant]
  5. AMISULPRIDE [Concomitant]
  6. PROCYCLIDINE [Concomitant]
  7. VALPROATE SODIUM [Concomitant]
  8. LORAZEPAM [Concomitant]

REACTIONS (2)
  - ELECTROCARDIOGRAM QT CORRECTED INTERVAL PROLONGED [None]
  - SUPRAVENTRICULAR EXTRASYSTOLES [None]
